FAERS Safety Report 10199261 (Version 3)
Quarter: 2014Q2

REPORT INFORMATION
  Report Type: Spontaneous
  Country: CA (occurrence: CA)
  Receive Date: 20140527
  Receipt Date: 20140604
  Transmission Date: 20141212
  Serious: Yes (Hospitalization)
  Sender: FDA-Public Use
  Company Number: CA-BAXTER-2014BAX021632

PATIENT
  Age: 62 Year
  Sex: Male

DRUGS (5)
  1. DIANEAL PD4 SOLUTION WITH 2.5% DEXTROSE AND 2.5 MEQ/L CALCIUM [Suspect]
     Indication: RENAL FAILURE
     Dosage: 2 BAGS
     Route: 033
     Dates: start: 2013
  2. DIANEAL PD4 SOLUTION WITH 2.5% DEXTROSE AND 2.5 MEQ/L CALCIUM [Suspect]
     Dosage: 1 BAGS
     Route: 033
     Dates: start: 2013
  3. EXTRANEAL [Suspect]
     Indication: RENAL FAILURE
     Dosage: 1 BAG
     Route: 033
     Dates: start: 2011
  4. ZYVOXAM [Concomitant]
     Indication: CATHETER SITE INFECTION
     Dates: start: 201403
  5. APO CLARITHROMYCIN [Concomitant]
     Indication: CATHETER SITE INFECTION
     Dates: start: 201403

REACTIONS (2)
  - Blood pressure abnormal [Unknown]
  - Hypotension [Recovering/Resolving]
